FAERS Safety Report 15200991 (Version 2)
Quarter: 2018Q4

REPORT INFORMATION
  Report Type: Spontaneous
  Country: JP (occurrence: JP)
  Receive Date: 20180726
  Receipt Date: 20181119
  Transmission Date: 20190204
  Serious: Yes (Other)
  Sender: FDA-Public Use
  Company Number: JP-AMGEN-JPNSP2018101679

PATIENT
  Age: 73 Year
  Sex: Male

DRUGS (5)
  1. SHOKENCHUTO [Suspect]
     Active Substance: HERBALS
     Indication: SINUSITIS
     Dosage: UNK
     Route: 048
  2. CLARIS [Suspect]
     Active Substance: SULFACETAMIDE SODIUM\SULFUR
     Indication: SINUSITIS
     Dosage: UNK
     Route: 048
  3. SHIN^ISEIHAITO [Suspect]
     Active Substance: HERBALS
     Indication: SINUSITIS
     Dosage: UNK
     Route: 048
  4. ENBREL [Suspect]
     Active Substance: ETANERCEPT
     Indication: PRODUCT USED FOR UNKNOWN INDICATION
     Dosage: UNK
     Route: 065
  5. TALION (BEPOTASTINE BESYLATE) [Suspect]
     Active Substance: BEPOTASTINE BESILATE
     Indication: SINUSITIS
     Dosage: UNK
     Route: 048

REACTIONS (2)
  - Sinusitis [Unknown]
  - Rheumatoid arthritis [Unknown]
